FAERS Safety Report 4826129-1 (Version None)
Quarter: 2005Q4

REPORT INFORMATION
  Report Type: 
  Country: None (occurrence: None)
  Receive Date: 20051109
  Receipt Date: 20051021
  Transmission Date: 20060501
  Serious: Yes (Other)
  Sender: FDA-Public Use
  Company Number: TRP_0491_2005

PATIENT
  Age: 50 Year
  Sex: Female
  Weight: 73.4827 kg

DRUGS (3)
  1. RIBASPHERE [Suspect]
     Indication: HEPATITIS C
     Dosage: 1000 MG QDAY PO
     Route: 048
     Dates: start: 20050401
  2. PEG-INTRON [Suspect]
     Dosage: 0.5 QWK SC
     Route: 058
     Dates: start: 20050401
  3. LEXAPRO [Concomitant]

REACTIONS (2)
  - FATIGUE [None]
  - THYROID DISORDER [None]
